FAERS Safety Report 7363386-4 (Version None)
Quarter: 2011Q1

REPORT INFORMATION
  Report Type: 
  Country: None (occurrence: None)
  Receive Date: 20110321
  Receipt Date: 20110308
  Transmission Date: 20110831
  Serious: Yes (Hospitalization)
  Sender: FDA-Public Use
  Company Number: US-JNJFOC-20080102913

PATIENT
  Sex: Male
  Weight: 48 kg

DRUGS (9)
  1. INFLIXIMAB [Suspect]
     Indication: COLITIS ULCERATIVE
     Route: 042
  2. MESALAMINE [Concomitant]
  3. INFLIXIMAB [Suspect]
     Route: 042
  4. INFLIXIMAB [Suspect]
     Route: 042
  5. INFLIXIMAB [Suspect]
     Route: 042
  6. METRONIDAZOLE [Concomitant]
  7. LEVAQUIN [Concomitant]
  8. INFLIXIMAB [Suspect]
     Route: 042
  9. PREDNISONE [Concomitant]

REACTIONS (2)
  - COLITIS ULCERATIVE [None]
  - VOMITING [None]
